FAERS Safety Report 10830548 (Version 1)
Quarter: 2015Q1

REPORT INFORMATION
  Report Type: Spontaneous
  Country: CA (occurrence: CA)
  Receive Date: 20150219
  Receipt Date: 20150219
  Transmission Date: 20150721
  Serious: Yes (Death, Other)
  Sender: FDA-Public Use
  Company Number: CA-ASTRAZENECA-2002UW04670

PATIENT
  Age: 6 Year
  Sex: Female

DRUGS (1)
  1. DIPRIVAN [Suspect]
     Active Substance: PROPOFOL
     Indication: SEDATION
     Route: 042
     Dates: start: 200102

REACTIONS (4)
  - Pneumonia [Unknown]
  - Chromaturia [Unknown]
  - Respiratory disorder [Fatal]
  - Influenza [Fatal]

NARRATIVE: CASE EVENT DATE: 200102
